FAERS Safety Report 5642981-4 (Version None)
Quarter: 2008Q1

REPORT INFORMATION
  Report Type: 
  Country: None (occurrence: None)
  Receive Date: 20080228
  Receipt Date: 20080222
  Transmission Date: 20080703
  Serious: Yes (Life-Threatening)
  Sender: FDA-Public Use
  Company Number: B0495750A

PATIENT
  Age: 81 Year
  Sex: Male
  Weight: 68 kg

DRUGS (8)
  1. ARIXTRA [Suspect]
     Indication: THROMBOSIS PROPHYLAXIS
     Dosage: 2.5MG PER DAY
     Route: 058
     Dates: start: 20071019, end: 20071031
  2. LORCAM [Suspect]
     Indication: ANALGESIA
     Dosage: 4MG THREE TIMES PER DAY
     Route: 048
     Dates: start: 20071017, end: 20071031
  3. MUCOSTA [Concomitant]
     Dosage: 300MG UNKNOWN
     Route: 048
     Dates: start: 20071017
  4. VOLTAREN [Concomitant]
     Indication: ANALGESIA
     Route: 054
     Dates: start: 20071017, end: 20071019
  5. GLYSENNID [Concomitant]
     Indication: CONSTIPATION
     Dosage: 12MG UNKNOWN
     Route: 048
     Dates: start: 20071020
  6. FLOMAX [Concomitant]
     Indication: INFECTION PROPHYLAXIS
     Dosage: 300MG UNKNOWN
     Route: 048
     Dates: start: 20071025, end: 20071031
  7. MAGMITT [Concomitant]
     Indication: CONSTIPATION
     Dosage: 990MG UNKNOWN
     Route: 048
     Dates: start: 20071102
  8. PANSPORIN [Concomitant]
     Dosage: 2G UNKNOWN
     Route: 042
     Dates: start: 20071106, end: 20071115

REACTIONS (5)
  - ANAEMIA [None]
  - FAECES DISCOLOURED [None]
  - GASTRIC HAEMORRHAGE [None]
  - GASTRIC ULCER [None]
  - STRESS [None]
